FAERS Safety Report 5234402-0 (Version None)
Quarter: 2007Q1

REPORT INFORMATION
  Report Type: 
  Country: None (occurrence: None)
  Receive Date: 20070209
  Receipt Date: 20070129
  Transmission Date: 20070707
  Serious: Yes (Death)
  Sender: FDA-Public Use
  Company Number: SE-ROCHE-481037

PATIENT
  Age: 37 Year
  Sex: Female

DRUGS (18)
  1. CYMEVENE [Suspect]
     Indication: DRUG USE FOR UNKNOWN INDICATION
     Dosage: REPORTED AS 425 MG X 2. HOME PUMP
     Route: 065
     Dates: start: 20041222
  2. CYMEVENE [Suspect]
     Route: 065
     Dates: start: 20050104
  3. MABTHERA [Suspect]
     Indication: DRUG USE FOR UNKNOWN INDICATION
     Dosage: 1 DOSE PER WEEK.
     Route: 065
  4. VFEND [Suspect]
     Indication: DRUG USE FOR UNKNOWN INDICATION
     Route: 065
  5. DOXYFERM [Concomitant]
  6. FORTUM [Concomitant]
  7. FURIX [Concomitant]
  8. LOSEC [Concomitant]
  9. MERONEM [Concomitant]
  10. MYCOSTATIN [Concomitant]
  11. PARACETAMOL [Concomitant]
  12. PENTACARINAT [Concomitant]
  13. PREDNISOLONE [Concomitant]
  14. CYCLOSPORINE [Concomitant]
  15. TAVEGYL [Concomitant]
  16. URSO FALK [Concomitant]
  17. UNSPECIFIED DRUG [Concomitant]
     Dosage: REPORTED AS SOLUMEDROL
  18. UNSPECIFIED DRUG [Concomitant]
     Dosage: REPORTED AS SOLUCORTEF

REACTIONS (20)
  - ABDOMINAL DISTENSION [None]
  - ANAPHYLACTIC REACTION [None]
  - ANXIETY [None]
  - BLOOD BILIRUBIN INCREASED [None]
  - CHOLESTASIS [None]
  - CONFUSIONAL STATE [None]
  - DEPRESSION [None]
  - DYSPNOEA [None]
  - FATIGUE [None]
  - HALLUCINATION [None]
  - LACTIC ACIDOSIS [None]
  - LEUKOPENIA [None]
  - MULTI-ORGAN FAILURE [None]
  - OEDEMA [None]
  - PAIN [None]
  - PYREXIA [None]
  - RENAL FAILURE ACUTE [None]
  - SOMNOLENCE [None]
  - TACHYCARDIA [None]
  - THROMBOCYTOPENIA [None]
